FAERS Safety Report 10516149 (Version 4)
Quarter: 2015Q3

REPORT INFORMATION
  Report Type: Report from Study
  Country: US (occurrence: US)
  Receive Date: 20141014
  Receipt Date: 20150914
  Transmission Date: 20151125
  Serious: Yes (Other)
  Sender: FDA-Public Use
  Company Number: US-ALEXION PHARMACEUTICALS INC-A201305761

PATIENT

DRUGS (2)
  1. SOLIRIS [Suspect]
     Active Substance: ECULIZUMAB
     Indication: PAROXYSMAL NOCTURNAL HAEMOGLOBINURIA
     Dosage: 900 MG, Q2W
     Route: 042
  2. SOLIRIS [Suspect]
     Active Substance: ECULIZUMAB
     Dosage: 1200 MG, UNK
     Route: 042

REACTIONS (10)
  - Haemoglobin decreased [Unknown]
  - Dyspnoea [Unknown]
  - Quality of life decreased [Unknown]
  - Malaise [Recovering/Resolving]
  - Abdominal pain [Unknown]
  - Biopsy bone marrow [Unknown]
  - Fatigue [Unknown]
  - Incorrect dose administered [Unknown]
  - Haemoglobinuria [Unknown]
  - Fatigue [Recovering/Resolving]

NARRATIVE: CASE EVENT DATE: 2014
